FAERS Safety Report 12831887 (Version 1)
Quarter: 2016Q4

REPORT INFORMATION
  Report Type: Spontaneous
  Country: FR (occurrence: FR)
  Receive Date: 20161010
  Receipt Date: 20161010
  Transmission Date: 20170207
  Serious: Yes (Hospitalization)
  Sender: FDA-Public Use
  Company Number: FR-009507513-1610FRA000751

PATIENT
  Age: 70 Year
  Sex: Female

DRUGS (16)
  1. ACUPAN [Suspect]
     Active Substance: NEFOPAM HYDROCHLORIDE
     Indication: PAIN
  2. RAMIPRIL. [Concomitant]
     Active Substance: RAMIPRIL
  3. BURINEX [Concomitant]
     Active Substance: BUMETANIDE
  4. IMOVANE [Concomitant]
     Active Substance: ZOPICLONE
  5. FLAGYL [Concomitant]
     Active Substance: METRONIDAZOLE\METRONIDAZOLE HYDROCHLORIDE
  6. DIFFU-K [Concomitant]
     Active Substance: POTASSIUM CHLORIDE
  7. TAZOCILLINE [Suspect]
     Active Substance: PIPERACILLIN SODIUM\TAZOBACTAM SODIUM
     Indication: PNEUMONIA KLEBSIELLA
     Dosage: UNK
     Route: 042
     Dates: start: 20150409, end: 20150412
  8. KARDEGIC [Concomitant]
     Active Substance: ASPIRIN LYSINE
  9. LASILIX [Concomitant]
     Active Substance: FUROSEMIDE
  10. ALPRAZOLAM. [Concomitant]
     Active Substance: ALPRAZOLAM
  11. INEXIUM (ESOMEPRAZOLE MAGNESIUM) [Concomitant]
     Active Substance: ESOMEPRAZOLE MAGNESIUM
  12. IMIPENEM AND CILASTATIN [Suspect]
     Active Substance: CILASTATIN SODIUM\IMIPENEM
     Indication: KLEBSIELLA INFECTION
     Dosage: UNK
     Route: 042
     Dates: start: 20150412, end: 20150413
  13. OXYNORMORO [Concomitant]
     Active Substance: OXYCODONE
  14. DOLIPRANE [Concomitant]
     Active Substance: ACETAMINOPHEN
  15. STABLON [Concomitant]
     Active Substance: TIANEPTINE
  16. TYGACIL [Suspect]
     Active Substance: TIGECYCLINE
     Indication: PNEUMONIA KLEBSIELLA
     Dosage: UNK
     Route: 041
     Dates: start: 20150413, end: 20160428

REACTIONS (3)
  - Eosinophilia [Recovered/Resolved]
  - Erythema [Recovered/Resolved]
  - Acute generalised exanthematous pustulosis [Recovered/Resolved]

NARRATIVE: CASE EVENT DATE: 20150413
